FAERS Safety Report 8111091-9 (Version None)
Quarter: 2012Q1

REPORT INFORMATION
  Report Type: 
  Country: None (occurrence: None)
  Receive Date: 20120203
  Receipt Date: 20110406
  Transmission Date: 20120608
  Serious: No
  Sender: FDA-Public Use
  Company Number: US-GLAXOSMITHKLINE-A0922527A

PATIENT
  Age: 37 Year
  Sex: Male

DRUGS (1)
  1. LAMICTAL [Suspect]
     Dosage: 100MG UNKNOWN
     Route: 065
     Dates: start: 20060401

REACTIONS (2)
  - HYPOAESTHESIA [None]
  - SENSORY DISTURBANCE [None]
